FAERS Safety Report 17468607 (Version 1)
Quarter: 2020Q1

REPORT INFORMATION
  Report Type: Spontaneous
  Country: CN (occurrence: CN)
  Receive Date: 20200227
  Receipt Date: 20200227
  Transmission Date: 20200409
  Serious: Yes (Death, Other)
  Sender: FDA-Public Use
  Company Number: CN-BAYER-2020-031546

PATIENT
  Age: 50 Year
  Sex: Male

DRUGS (6)
  1. LOPINAVIR + RITONAVIR [Concomitant]
     Active Substance: LOPINAVIR\RITONAVIR
     Indication: ANTIVIRAL TREATMENT
     Dosage: 500 MG, BID
     Route: 048
     Dates: start: 20200122, end: 20200127
  2. MEROPENEM. [Concomitant]
     Active Substance: MEROPENEM
     Dosage: UNK
     Dates: start: 20200125, end: 20200127
  3. MOXIFLOXACIN IV [Suspect]
     Active Substance: MOXIFLOXACIN
     Indication: INFECTION PROPHYLAXIS
     Dosage: 0.4 G, QD
     Route: 041
     Dates: start: 20200121, end: 20200127
  4. INTERFERON ALFA-2B [Concomitant]
     Active Substance: INTERFERON ALFA-2B
     Indication: ANTIVIRAL TREATMENT
     Dosage: 5 DF, BID
     Route: 055
     Dates: start: 20200122, end: 20200127
  5. OXYGEN. [Concomitant]
     Active Substance: OXYGEN
     Dosage: UNK
     Route: 055
     Dates: start: 20200122
  6. METHYLPREDNISOLONE. [Concomitant]
     Active Substance: METHYLPREDNISOLONE
     Indication: PNEUMONITIS
     Dosage: 80 MG, BID
     Route: 042
     Dates: start: 20200121, end: 20200127

REACTIONS (5)
  - Product use in unapproved indication [None]
  - Off label use [None]
  - Hypoxia [None]
  - Dyspnoea [None]
  - Cardiac arrest [Fatal]

NARRATIVE: CASE EVENT DATE: 20200121
